FAERS Safety Report 17747462 (Version 1)
Quarter: 2020Q2

REPORT INFORMATION
  Report Type: Spontaneous
  Country: US (occurrence: US)
  Receive Date: 20200505
  Receipt Date: 20200505
  Transmission Date: 20200714
  Serious: Yes (Hospitalization)
  Sender: FDA-Public Use
  Company Number: NVSC2020US118961

PATIENT
  Age: 72 Year
  Sex: Male

DRUGS (2)
  1. PREDNISONE. [Suspect]
     Active Substance: PREDNISONE
     Indication: GOUT
     Dosage: 20 MG
     Route: 048
  2. ANAKINRA [Suspect]
     Active Substance: ANAKINRA
     Indication: GOUT
     Dosage: UNK
     Route: 065

REACTIONS (3)
  - Pyrexia [Unknown]
  - Product use in unapproved indication [Unknown]
  - Skin mass [Unknown]
